FAERS Safety Report 9463569 (Version 2)
Quarter: 2013Q3

REPORT INFORMATION
  Report Type: Spontaneous
  Country: BR (occurrence: BR)
  Receive Date: 20130819
  Receipt Date: 20130903
  Transmission Date: 20140515
  Serious: Yes (Death, Hospitalization, Other)
  Sender: FDA-Public Use
  Company Number: BR-AMGEN-BRASP2013057557

PATIENT
  Age: 87 Year
  Sex: Female
  Weight: 48 kg

DRUGS (3)
  1. ENBREL [Suspect]
     Indication: RHEUMATOID ARTHRITIS
     Dosage: 50 MG, 1X/WEEK
     Route: 058
  2. PREDSIM [Concomitant]
     Dosage: 20 MG (1 TABLET), 1X/DAY
     Route: 048
  3. OMEPRAZOL                          /00661201/ [Concomitant]
     Dosage: UNK

REACTIONS (3)
  - Death [Fatal]
  - Fall [Unknown]
  - Femur fracture [Unknown]
